FAERS Safety Report 5053776-7 (Version None)
Quarter: 2006Q2

REPORT INFORMATION
  Report Type: 
  Country: None (occurrence: None)
  Receive Date: 20060612
  Receipt Date: 20060630
  Transmission Date: 20061013
  Serious: Yes (Other)
  Sender: FDA-Public Use
  Company Number: 2006082997

PATIENT
  Age: 69 Year
  Sex: Male

DRUGS (1)
  1. CELEBREX [Suspect]
     Indication: BACK INJURY
     Dosage: 200 MG (200 MG), ORAL
     Route: 048
     Dates: start: 20060626, end: 20060626

REACTIONS (4)
  - ABNORMAL BEHAVIOUR [None]
  - BLOOD PRESSURE ABNORMAL [None]
  - DYSURIA [None]
  - HALLUCINATION [None]
